FAERS Safety Report 7073520-1 (Version None)
Quarter: 2010Q4

REPORT INFORMATION
  Report Type: 
  Country: None (occurrence: None)
  Receive Date: 20101029
  Receipt Date: 20100702
  Transmission Date: 20110411
  Serious: No
  Sender: FDA-Public Use
  Company Number: A0868396A

PATIENT
  Age: 62 Year
  Sex: Male

DRUGS (10)
  1. ADVAIR DISKUS 100/50 [Suspect]
     Indication: ASTHMA
     Route: 055
  2. NEURONTIN [Concomitant]
  3. HYDROCODONE [Concomitant]
  4. PREDNISONE [Concomitant]
  5. CTM [Concomitant]
  6. MUCINEX [Concomitant]
  7. VITAMIN D [Concomitant]
  8. IRON [Concomitant]
  9. BLOOD PRESSURE MEDICATION [Concomitant]
  10. ALLOPURINOL [Concomitant]

REACTIONS (1)
  - DYSPNOEA [None]
